FAERS Safety Report 8762868 (Version 1)
Quarter: 2012Q4

REPORT INFORMATION
  Report Type: 
  Country: US (occurrence: US)
  Receive Date: 20120828
  Receipt Date: 20120828
  Transmission Date: 20130627
  Serious: No
  Sender: FDA-Public Use
  Company Number: US-PFIZER INC-2012208881

PATIENT
  Sex: Female

DRUGS (1)
  1. NEURONTIN [Suspect]
     Dosage: 600 mg, UNK

REACTIONS (4)
  - Incorrect dose administered [Unknown]
  - Tinnitus [Unknown]
  - Headache [Recovering/Resolving]
  - Tremor [Unknown]
